FAERS Safety Report 24406876 (Version 2)
Quarter: 2024Q4

REPORT INFORMATION
  Report Type: Spontaneous
  Country: SE (occurrence: SE)
  Receive Date: 20241007
  Receipt Date: 20241030
  Transmission Date: 20250115
  Serious: Yes (Hospitalization)
  Sender: TEVA
  Company Number: None

PATIENT
  Age: 50 Year
  Sex: Female

DRUGS (6)
  1. DIAZEPAM [Suspect]
     Active Substance: DIAZEPAM
     Indication: Product used for unknown indication
     Dosage: STESOLID
     Route: 065
     Dates: start: 20240913, end: 20240913
  2. Betolvex [Concomitant]
     Indication: Product used for unknown indication
     Route: 065
  3. CALCIUM CARBONATE\CHOLECALCIFEROL [Concomitant]
     Active Substance: CALCIUM CARBONATE\CHOLECALCIFEROL
     Indication: Product used for unknown indication
     Route: 065
  4. VENLAFAXINE [Suspect]
     Active Substance: VENLAFAXINE HYDROCHLORIDE
     Indication: Product used for unknown indication
     Route: 065
     Dates: start: 20240913, end: 20240913
  5. PROPIOMAZINE [Suspect]
     Active Substance: PROPIOMAZINE
     Indication: Product used for unknown indication
     Route: 065
     Dates: start: 20240913, end: 20240913
  6. QUETIAPINE [Suspect]
     Active Substance: QUETIAPINE
     Indication: Product used for unknown indication
     Route: 065
     Dates: start: 20240913, end: 20240913

REACTIONS (3)
  - Toxicity to various agents [Unknown]
  - Depressed level of consciousness [Unknown]
  - Suicidal ideation [Unknown]

NARRATIVE: CASE EVENT DATE: 20240913
